FAERS Safety Report 6050895-3 (Version None)
Quarter: 2009Q1

REPORT INFORMATION
  Report Type: 
  Country: None (occurrence: None)
  Receive Date: 20090121
  Receipt Date: 20090114
  Transmission Date: 20090719
  Serious: Yes (Death, Hospitalization)
  Sender: FDA-Public Use
  Company Number: 2009SP000826

PATIENT
  Age: 63 Year
  Sex: Female
  Weight: 51 kg

DRUGS (2)
  1. TEMOZOLOMIDE [Suspect]
     Indication: GLIOBLASTOMA MULTIFORME
     Dosage: 100 MG; UNK; PO
     Route: 048
     Dates: start: 20080925, end: 20090110
  2. TOPIRAMATE [Concomitant]

REACTIONS (3)
  - CARDIAC ARREST [None]
  - CARDIAC DISORDER [None]
  - PULMONARY EMBOLISM [None]
